FAERS Safety Report 10489997 (Version 2)
Quarter: 2015Q1

REPORT INFORMATION
  Report Type: Report from Study
  Country: LU (occurrence: LU)
  Receive Date: 20141002
  Receipt Date: 20150130
  Transmission Date: 20150720
  Serious: Yes (Hospitalization)
  Sender: FDA-Public Use
  Company Number: LU-BAYER-2014-143892

PATIENT
  Age: 67 Year
  Sex: Male
  Weight: 78 kg

DRUGS (5)
  1. OXYCONTIN [Concomitant]
     Active Substance: OXYCODONE HYDROCHLORIDE
     Dosage: 20 MG, BID
     Dates: start: 20140601
  2. XOFIGO [Suspect]
     Active Substance: RADIUM RA-223 DICHLORIDE
     Indication: PROSTATE CANCER METASTATIC
     Dosage: 3960 KBQ, UNK
     Route: 042
     Dates: start: 20140917, end: 20140917
  3. OXYCONTIN [Concomitant]
     Active Substance: OXYCODONE HYDROCHLORIDE
     Dosage: DOSE INCREASED
  4. DUROGESIC [Concomitant]
     Active Substance: FENTANYL
     Dosage: 175 ?G/H, DAILY
     Dates: start: 20140601
  5. DAFALGAN [Concomitant]
     Active Substance: ACETAMINOPHEN
     Dosage: 500 MG, QID
     Dates: start: 20140910

REACTIONS (1)
  - Bone pain [Recovered/Resolved]

NARRATIVE: CASE EVENT DATE: 20140918
